FAERS Safety Report 9044609 (Version 1)
Quarter: 2013Q1

REPORT INFORMATION
  Report Type: Report from Study
  Country: US (occurrence: US)
  Receive Date: 20130130
  Receipt Date: 20130130
  Transmission Date: 20140127
  Serious: Yes (Other)
  Sender: FDA-Public Use
  Company Number: US-ASTRAZENECA-2013SE04768

PATIENT
  Age: 65 Year
  Sex: Female

DRUGS (1)
  1. SEROQUEL [Suspect]
     Route: 048

REACTIONS (5)
  - Epilepsy [Unknown]
  - Convulsion [Unknown]
  - Brain injury [Unknown]
  - Head discomfort [Unknown]
  - Insomnia [Unknown]
